FAERS Safety Report 23707480 (Version 1)
Quarter: 2024Q2

REPORT INFORMATION
  Report Type: Spontaneous
  Country: CN (occurrence: None)
  Receive Date: 20240404
  Receipt Date: 20240404
  Transmission Date: 20240716
  Serious: Yes (Hospitalization, Disabling)
  Sender: FDA-Public Use
  Company Number: 2024A076922

PATIENT
  Age: 27279 Day
  Sex: Male
  Weight: 70 kg

DRUGS (3)
  1. OLAPARIB [Suspect]
     Active Substance: OLAPARIB
     Indication: Prostate cancer
     Route: 048
     Dates: start: 20240116, end: 20240316
  2. PREDNISONE ACETATE [Concomitant]
     Active Substance: PREDNISONE ACETATE
     Indication: Prostate cancer
     Route: 048
     Dates: start: 20240316, end: 20240327
  3. ABIRATERONE ACETATE [Concomitant]
     Active Substance: ABIRATERONE ACETATE
     Indication: Prostate cancer
     Route: 048
     Dates: start: 20240316, end: 20240327

REACTIONS (5)
  - Myelosuppression [Recovering/Resolving]
  - Pneumonia [Recovering/Resolving]
  - Pyrexia [Recovering/Resolving]
  - Mouth ulceration [Recovering/Resolving]
  - Agranulocytosis [Recovering/Resolving]

NARRATIVE: CASE EVENT DATE: 20240316
